FAERS Safety Report 19565358 (Version 4)
Quarter: 2021Q3

REPORT INFORMATION
  Report Type: Report from Study
  Country: US (occurrence: US)
  Receive Date: 20210715
  Receipt Date: 20210813
  Transmission Date: 20211014
  Serious: Yes (Hospitalization, Other)
  Sender: FDA-Public Use
  Company Number: US-B.I. PHARMACEUTICALS,INC./RIDGEFIELD-2021-BI-115242

PATIENT
  Age: 47 Year
  Sex: Male
  Weight: 65.3 kg

DRUGS (2)
  1. NECITUMUMAB [Suspect]
     Active Substance: NECITUMUMAB
     Indication: LUNG CANCER METASTATIC
     Route: 042
     Dates: start: 20210514, end: 20210629
  2. AFATINIB [Suspect]
     Active Substance: AFATINIB
     Indication: LUNG CANCER METASTATIC
     Route: 048
     Dates: start: 20210514, end: 20210629

REACTIONS (2)
  - Ventricular tachycardia [Recovering/Resolving]
  - Ventricular arrhythmia [Recovered/Resolved]

NARRATIVE: CASE EVENT DATE: 20210611
